FAERS Safety Report 5466062-8 (Version None)
Quarter: 2007Q3

REPORT INFORMATION
  Report Type: 
  Country: None (occurrence: None)
  Receive Date: 20070919
  Receipt Date: 20070911
  Transmission Date: 20080115
  Serious: Yes (Other)
  Sender: FDA-Public Use
  Company Number: 083-21880-07090546

PATIENT
  Sex: 0

DRUGS (4)
  1. REVLIMID [Suspect]
     Indication: MULTIPLE MYELOMA
     Dosage: 5-10MG, QD, ORAL
     Route: 048
  2. MELPHALAN (MELPHALAN) [Suspect]
     Indication: MULTIPLE MYELOMA
     Dosage: 0.18 TO 0.25 MG/KG, DAYS 1-4
  3. PREDNISONE TAB [Suspect]
     Indication: MULTIPLE MYELOMA
     Dosage: 2 MG/KG, DAYS 1-4
  4. ASPIRIN [Concomitant]

REACTIONS (20)
  - ANAEMIA [None]
  - ANOREXIA [None]
  - BLOOD DISORDER [None]
  - CONSTIPATION [None]
  - DEEP VEIN THROMBOSIS [None]
  - DIARRHOEA [None]
  - DIZZINESS [None]
  - EMBOLISM [None]
  - FATIGUE [None]
  - FEBRILE NEUTROPENIA [None]
  - MOOD ALTERED [None]
  - NAUSEA [None]
  - NEUTROPENIA [None]
  - PNEUMONIA [None]
  - PULMONARY EMBOLISM [None]
  - PYREXIA [None]
  - RASH [None]
  - THROMBOCYTOPENIA [None]
  - UPPER RESPIRATORY TRACT INFECTION [None]
  - VASCULITIS [None]
